FAERS Safety Report 21957577 (Version 14)
Quarter: 2023Q4

REPORT INFORMATION
  Report Type: Report from Study
  Country: TH (occurrence: None)
  Receive Date: 20230206
  Receipt Date: 20231003
  Transmission Date: 20240110
  Serious: Yes (Hospitalization)
  Sender: FDA-Public Use
  Company Number: TH-Eisai Medical Research-EC-2023-133260

PATIENT
  Age: 51 Year
  Sex: Male
  Weight: 76.1 kg

DRUGS (8)
  1. LENVATINIB [Suspect]
     Active Substance: LENVATINIB
     Indication: Clear cell renal cell carcinoma
     Route: 048
     Dates: start: 20221110, end: 20221130
  2. LENVATINIB [Suspect]
     Active Substance: LENVATINIB
     Route: 048
     Dates: start: 20221228, end: 20230118
  3. PEMBROLIZUMAB [Suspect]
     Active Substance: PEMBROLIZUMAB
     Indication: Clear cell renal cell carcinoma
     Route: 041
     Dates: start: 20221110, end: 20221110
  4. BELZUTIFAN [Suspect]
     Active Substance: BELZUTIFAN
     Indication: Clear cell renal cell carcinoma
     Route: 048
     Dates: start: 20221110, end: 20221130
  5. BELZUTIFAN [Suspect]
     Active Substance: BELZUTIFAN
     Route: 048
     Dates: start: 20221228, end: 20230118
  6. UREA [Concomitant]
     Active Substance: UREA
     Dates: start: 20221110, end: 20221206
  7. KANOLONE [Concomitant]
     Dates: start: 20221110, end: 20221228
  8. LOPERAMIDE [Concomitant]
     Active Substance: LOPERAMIDE
     Dates: start: 20221110, end: 20221228

REACTIONS (4)
  - Alanine aminotransferase increased [Not Recovered/Not Resolved]
  - Aspartate aminotransferase increased [Not Recovered/Not Resolved]
  - Gamma-glutamyltransferase increased [Not Recovered/Not Resolved]
  - Blood bilirubin increased [Recovered/Resolved]

NARRATIVE: CASE EVENT DATE: 20221201
